FAERS Safety Report 8436694-3 (Version None)
Quarter: 2012Q2

REPORT INFORMATION
  Report Type: 
  Country: None (occurrence: None)
  Receive Date: 20120608
  Receipt Date: 20120608
  Transmission Date: 20120825
  Serious: Yes (Life-Threatening, Hospitalization, Other)
  Sender: FDA-Public Use
  Company Number: None

PATIENT
  Age: 36 Year
  Sex: Female
  Weight: 149.687 kg

DRUGS (1)
  1. BALZIVA-21 [Suspect]
     Indication: MENSTRUATION IRREGULAR
     Dosage: 1 TABLET EVERY DAY
     Dates: start: 20120101, end: 20120220

REACTIONS (2)
  - PULMONARY EMBOLISM [None]
  - DEEP VEIN THROMBOSIS [None]
